FAERS Safety Report 6642369-3 (Version None)
Quarter: 2010Q1

REPORT INFORMATION
  Report Type: 
  Country: None (occurrence: None)
  Receive Date: 20100319
  Receipt Date: 20100316
  Transmission Date: 20100710
  Serious: Yes (Hospitalization)
  Sender: FDA-Public Use
  Company Number: FR-ROCHE-689572

PATIENT
  Sex: Male

DRUGS (13)
  1. ROCEPHIN [Suspect]
     Route: 042
     Dates: start: 20100114, end: 20100124
  2. VANCOMYCIN HCL [Suspect]
     Route: 042
     Dates: start: 20100114, end: 20100124
  3. INSULIN [Concomitant]
  4. LEVEMIR [Concomitant]
  5. OMEPRAZOLE [Concomitant]
  6. SIMVASTATIN [Concomitant]
  7. LYRICA [Concomitant]
  8. GLUCOR [Concomitant]
  9. BUMEX [Concomitant]
  10. IRBESARTAN [Concomitant]
  11. CORTANCYL [Concomitant]
  12. KARDEGIC [Concomitant]
  13. ALFUZOSINE [Concomitant]
     Dosage: DRUG REPORTED AS ALFUZOCINE

REACTIONS (1)
  - LINEAR IGA DISEASE [None]
